FAERS Safety Report 4860210-6 (Version None)
Quarter: 2005Q4

REPORT INFORMATION
  Report Type: 
  Country: None (occurrence: None)
  Receive Date: 20051219
  Receipt Date: 20051214
  Transmission Date: 20060501
  Serious: Yes (Other)
  Sender: FDA-Public Use
  Company Number: DE-GILEAD-2005-0009024

PATIENT
  Sex: Male
  Weight: 73 kg

DRUGS (3)
  1. VIREAD [Suspect]
     Indication: HIV INFECTION
     Route: 048
     Dates: start: 20030101
  2. ZIAGEN [Concomitant]
  3. KALETRA [Concomitant]

REACTIONS (8)
  - BLOOD CREATININE INCREASED [None]
  - HYPERCALCIURIA [None]
  - HYPERPHOSPHATURIA [None]
  - HYPOPHOSPHATAEMIA [None]
  - PROTEINURIA [None]
  - RENAL FAILURE [None]
  - RENAL TUBULAR DISORDER [None]
  - SPLENOMEGALY [None]
